FAERS Safety Report 17198433 (Version 1)
Quarter: 2019Q4

REPORT INFORMATION
  Report Type: Spontaneous
  Country: ES (occurrence: ES)
  Receive Date: 20191225
  Receipt Date: 20191225
  Transmission Date: 20200122
  Serious: Yes (Other)
  Sender: FDA-Public Use
  Company Number: ES-AUROBINDO-AUR-APL-2019-107123

PATIENT
  Age: 36 Year
  Sex: Female

DRUGS (8)
  1. METHYLDOPA. [Interacting]
     Active Substance: METHYLDOPA
     Indication: HYPERTENSION
     Dosage: UNK, DOSE INCREASED
     Route: 065
  2. LABETALOL [Interacting]
     Active Substance: LABETALOL\LABETALOL HYDROCHLORIDE
     Dosage: 100 MILLIGRAM, TWO TIMES A DAY
     Route: 065
  3. LABETALOL [Interacting]
     Active Substance: LABETALOL\LABETALOL HYDROCHLORIDE
     Dosage: 100 MILLIGRAM, FOUR TIMES/DAY
     Route: 065
  4. LABETALOL [Interacting]
     Active Substance: LABETALOL\LABETALOL HYDROCHLORIDE
     Indication: HYPERTENSION
     Dosage: UNK, DOSE INCREASED
     Route: 065
  5. METHYLERGOMETRINE [Suspect]
     Active Substance: METHYLERGONOVINE MALEATE
     Indication: POSTPARTUM HAEMORRHAGE
     Dosage: UNK
     Route: 065
  6. METHYLDOPA. [Interacting]
     Active Substance: METHYLDOPA
     Dosage: 500 MILLIGRAM, 3 TIMES A DAY
     Route: 065
  7. IBUPROFEN. [Suspect]
     Active Substance: IBUPROFEN
     Indication: PRODUCT USED FOR UNKNOWN INDICATION
     Dosage: UNK
     Route: 065
  8. LABETALOL [Interacting]
     Active Substance: LABETALOL\LABETALOL HYDROCHLORIDE
     Dosage: 100 MILLIGRAM, 3 TIMES A DAY
     Route: 065

REACTIONS (5)
  - Palpitations [Recovered/Resolved]
  - Drug interaction [Recovered/Resolved]
  - Hypertension [Recovered/Resolved]
  - Dyspnoea [Recovered/Resolved]
  - Pulmonary arterial hypertension [Recovered/Resolved]
